FAERS Safety Report 10277045 (Version 2)
Quarter: 2014Q3

REPORT INFORMATION
  Report Type: Spontaneous
  Country: US (occurrence: US)
  Receive Date: 20140703
  Receipt Date: 20140814
  Transmission Date: 20150326
  Serious: Yes (Other)
  Sender: FDA-Public Use
  Company Number: US-GLAXOSMITHKLINE-A1079224A

PATIENT
  Age: 69 Year
  Sex: Female
  Weight: 74.5 kg

DRUGS (10)
  1. HYDROCHLOROTHIAZIDE. [Concomitant]
     Active Substance: HYDROCHLOROTHIAZIDE
  2. INHALER [Concomitant]
     Active Substance: UNSPECIFIED INGREDIENT
  3. MULTI VITAMINS [Concomitant]
  4. WARFARIN [Concomitant]
     Active Substance: WARFARIN
  5. OMEPRAZOLE. [Concomitant]
     Active Substance: OMEPRAZOLE
  6. CHLORDIAZEPOXIDE+CLIDINIUM BROMIDE [Concomitant]
  7. METAMUCIL [Concomitant]
     Active Substance: PLANTAGO SEED
  8. ADVAIR HFA [Suspect]
     Active Substance: FLUTICASONE PROPIONATE\SALMETEROL XINAFOATE
     Indication: ASTHMA
     Dosage: 1PUFF TWICE PER DAY
     Route: 055
     Dates: start: 1982
  9. SOTALOL. [Concomitant]
     Active Substance: SOTALOL
  10. MONTELUKAST [Concomitant]
     Active Substance: MONTELUKAST SODIUM

REACTIONS (7)
  - Cardiac ablation [Recovered/Resolved]
  - Gastric disorder [Recovered/Resolved]
  - Faeces hard [Recovered/Resolved]
  - Pneumonia [Recovered/Resolved]
  - Cardiac operation [Recovered/Resolved]
  - Gastric operation [Recovered/Resolved]
  - Constipation [Recovered/Resolved]

NARRATIVE: CASE EVENT DATE: 2013
